FAERS Safety Report 6634489-4 (Version None)
Quarter: 2010Q1

REPORT INFORMATION
  Report Type: 
  Country: None (occurrence: None)
  Receive Date: 20100315
  Receipt Date: 20100309
  Transmission Date: 20100710
  Serious: Yes (Life-Threatening)
  Sender: FDA-Public Use
  Company Number: HK-ROCHE-689806

PATIENT

DRUGS (2)
  1. AVASTIN [Suspect]
     Dosage: RECEIVED 2 CYCLES
     Route: 042
  2. IRINOTECAN [Concomitant]
     Dosage: RECEIVED 2 CYCLES

REACTIONS (1)
  - INTESTINAL OBSTRUCTION [None]
